FAERS Safety Report 9240412 (Version 2)
Quarter: 2013Q2

REPORT INFORMATION
  Report Type: Spontaneous
  Country: IT (occurrence: None)
  Receive Date: 20130417
  Receipt Date: 20130425
  Transmission Date: 20140414
  Serious: Yes (Hospitalization)
  Sender: FDA-Public Use
  Company Number: 2013AP004333

PATIENT
  Age: 7 Year
  Sex: Male

DRUGS (5)
  1. LEVOFLOXACIN [Suspect]
     Indication: TUBERCULOSIS
     Route: 048
     Dates: start: 20130206, end: 20130226
  2. TRECATOR [Suspect]
     Indication: TUBERCULOSIS
     Route: 048
     Dates: start: 20130206, end: 20130226
  3. TERIZIDONE (TERIZIDONE) [Concomitant]
  4. PIRALDINA (PYRAZINAMIDE) [Concomitant]
  5. ETAPIAM (ETHAMBUTOL DIHYDROCHLORIDE) [Concomitant]

REACTIONS (5)
  - Conjunctivitis [None]
  - Hyperaemia [None]
  - Urticaria [None]
  - Vomiting [None]
  - Pruritus generalised [None]
